FAERS Safety Report 7896685-8 (Version None)
Quarter: 2011Q4

REPORT INFORMATION
  Report Type: 
  Country: None (occurrence: None)
  Receive Date: 20111107
  Receipt Date: 20111026
  Transmission Date: 20120403
  Serious: No
  Sender: FDA-Public Use
  Company Number: US-BIOGENIDEC-2011BI041133

PATIENT
  Age: 63 Year
  Sex: Female

DRUGS (1)
  1. TYSABRI [Suspect]
     Indication: MULTIPLE SCLEROSIS
     Route: 042
     Dates: start: 20110805

REACTIONS (6)
  - DEPRESSION [None]
  - DRUG EFFECT DECREASED [None]
  - DIARRHOEA [None]
  - ASTHENIA [None]
  - CONSTIPATION [None]
  - MOBILITY DECREASED [None]
